FAERS Safety Report 22647815 (Version 1)
Quarter: 2023Q2

REPORT INFORMATION
  Report Type: Spontaneous
  Country: CN (occurrence: None)
  Receive Date: 20230628
  Receipt Date: 20230628
  Transmission Date: 20230722
  Serious: Yes (Other)
  Sender: FDA-Public Use
  Company Number: CN-ROCHE-3190014

PATIENT
  Age: 56 Year
  Sex: Female

DRUGS (17)
  1. XELODA [Suspect]
     Active Substance: CAPECITABINE
     Indication: Rectal cancer
     Dosage: 1500 MG TWICE A DAY D1-14 ONCE EVERY THREE WEEKS
     Route: 048
     Dates: end: 20210902
  2. XELODA [Suspect]
     Active Substance: CAPECITABINE
     Dosage: UNKNOWN DOSE TWICE A DAY D1-14 ONCE EVERY THREE WEEKS,  SEVEN TIMES.
     Route: 048
     Dates: start: 20210206, end: 20220618
  3. AVASTIN [Suspect]
     Active Substance: BEVACIZUMAB
     Indication: Rectal cancer
     Dosage: 300MG ONCE EVERY TWO WEEKS, EIGHT TIMES.
     Route: 065
     Dates: start: 20211004
  4. AVASTIN [Suspect]
     Active Substance: BEVACIZUMAB
     Dosage: 400MG ONCE EVERY THREE WEEKS, SEVEN TIMES
     Route: 065
     Dates: start: 20210206, end: 20220618
  5. REGORAFENIB [Concomitant]
     Active Substance: REGORAFENIB
     Indication: Rectal cancer
     Dosage: THREE WEEKS, FOUR WEEKS A CYCLE, 2 CYCLES
     Route: 048
  6. REGORAFENIB [Concomitant]
     Active Substance: REGORAFENIB
     Dosage: THREE WEEKS, FOUR WEEKS A CYCLE
     Route: 048
     Dates: start: 20221105, end: 20230330
  7. OXALIPLATIN [Concomitant]
     Active Substance: OXALIPLATIN
     Indication: Rectal cancer
     Dosage: ON AN UNSPECIFIED DATE THE PATIENT STARTED TREATMENT WITH FOLFOX(OXALIPLATIN,?CALCIUM FOLINATE, FLUO
     Dates: start: 20200504
  8. LEUCOVORIN CALCIUM [Concomitant]
     Active Substance: LEUCOVORIN CALCIUM
     Indication: Rectal cancer
     Dosage: 0.5G ONCE EVERY TWO WEEKS EIGHT TIMES
     Dates: start: 20200504
  9. LEUCOVORIN CALCIUM [Concomitant]
     Active Substance: LEUCOVORIN CALCIUM
     Dosage: 0.6G ONCE EVERY TWO WEEKS EIGHT TIMES
     Dates: start: 20211004
  10. FLUOROURACIL [Concomitant]
     Active Substance: FLUOROURACIL
     Indication: Rectal cancer
     Dosage: 0.5G ONCE EVERY TWO WEEKS EIGHT TIMES
     Dates: start: 20200504
  11. FLUOROURACIL [Concomitant]
     Active Substance: FLUOROURACIL
     Dosage: 3.5G CONTINUOUS INTRAVENOUS INFUSION 46H ONCE EVERY TWO WEEKS EIGHT TIMES
     Dates: start: 20200504
  12. FLUOROURACIL [Concomitant]
     Active Substance: FLUOROURACIL
     Dosage: 0.6G ONCE EVERY TWO WEEKS EIGHT TIMES
     Dates: start: 20211004
  13. FLUOROURACIL [Concomitant]
     Active Substance: FLUOROURACIL
     Dosage: 3.9G CONTINUOUS INTRAVENOUS INFUSION 46H ONCE EVERY TWO WEEKS EIGHT TIMES
     Dates: start: 20211004
  14. IRINOTECAN [Concomitant]
     Active Substance: IRINOTECAN
     Indication: Rectal cancer
     Dosage: 280MG ONCE EVERY TWO WEEKS EIGHT TIMES
     Dates: start: 20211004
  15. FRUQUINTINIB [Concomitant]
     Active Substance: FRUQUINTINIB
     Indication: Rectal cancer
     Dosage: 5MG ONCE A DAY D1-21 ONCE EVERY FOUR WEEKS
     Route: 048
     Dates: start: 20220807
  16. CETUXIMAB [Concomitant]
     Active Substance: CETUXIMAB
     Indication: Rectal cancer
     Dosage: 800MG D1 ONCE EVREY TWO WEEKS EIGHT TIMES
     Dates: start: 20200504
  17. SINTILIMAB [Concomitant]
     Active Substance: SINTILIMAB
     Dates: start: 20221105, end: 20230330

REACTIONS (6)
  - White blood cell count decreased [Unknown]
  - Platelet count decreased [Unknown]
  - Asthenia [Unknown]
  - Cholinergic syndrome [Recovering/Resolving]
  - Hypertension [Unknown]
  - Palmar-plantar erythrodysaesthesia syndrome [Unknown]

NARRATIVE: CASE EVENT DATE: 20220820
